FAERS Safety Report 8368488-1 (Version None)
Quarter: 2012Q2

REPORT INFORMATION
  Report Type: 
  Country: None (occurrence: None)
  Receive Date: 20120518
  Receipt Date: 20120504
  Transmission Date: 20120825
  Serious: Yes (Death, Other)
  Sender: FDA-Public Use
  Company Number: FR-RANBAXY-2012RR-55919

PATIENT
  Age: 74 Year
  Sex: Female

DRUGS (2)
  1. NORFLOXACIN [Interacting]
     Indication: CYSTITIS
     Dosage: UNK
     Route: 065
     Dates: start: 20100701
  2. SIMVASTATIN [Suspect]
     Indication: HYPERLIPIDAEMIA
     Dosage: UNK
     Route: 065
     Dates: start: 19990101

REACTIONS (2)
  - RHABDOMYOLYSIS [None]
  - DRUG INTERACTION [None]
